FAERS Safety Report 19805501 (Version 1)
Quarter: 2021Q3

REPORT INFORMATION
  Report Type: Spontaneous
  Country: ES (occurrence: ES)
  Receive Date: 20210909
  Receipt Date: 20210909
  Transmission Date: 20211014
  Serious: Yes (Hospitalization, Other)
  Sender: FDA-Public Use
  Company Number: ES-AUROBINDO-AUR-APL-2021-037750

PATIENT
  Age: 53 Year
  Sex: Male
  Weight: 112 kg

DRUGS (3)
  1. SPIRONOLACTONE. [Concomitant]
     Active Substance: SPIRONOLACTONE
     Indication: ASCITES
     Dosage: 50 MILLIGRAM, DAILY
     Route: 048
     Dates: start: 20210802
  2. FUROSEMIDE. [Suspect]
     Active Substance: FUROSEMIDE
     Indication: ASCITES
     Dosage: 120 MILLIGRAM(80MG IN BREAKFAST AND 40MG IN FOOD)
     Route: 048
     Dates: start: 20210802, end: 20210819
  3. AMLODIPINO [Concomitant]
     Active Substance: AMLODIPINE BESYLATE
     Indication: ESSENTIAL HYPERTENSION
     Dosage: 5 MILLIGRAM
     Route: 048
     Dates: start: 20180302, end: 20210823

REACTIONS (4)
  - Hypomagnesaemia [Recovered/Resolved]
  - Hypotension [Recovered/Resolved]
  - Acute kidney injury [Recovered/Resolved]
  - Hyponatraemia [Recovered/Resolved]

NARRATIVE: CASE EVENT DATE: 20210819
